FAERS Safety Report 7550063-X (Version None)
Quarter: 2011Q2

REPORT INFORMATION
  Report Type: 
  Country: None (occurrence: None)
  Receive Date: 20110615
  Receipt Date: 20101207
  Transmission Date: 20111010
  Serious: No
  Sender: FDA-Public Use
  Company Number: US-TYCO HEALTHCARE/MALLINCKRODT-T201002403

PATIENT
  Sex: Male

DRUGS (3)
  1. ULTRATAG [Suspect]
     Indication: RECTAL HAEMORRHAGE
     Dosage: UNK UNK,
     Dates: start: 20101207, end: 20101207
  2. TECHNETIUM (99M TC) DTPA [Suspect]
     Dosage: 40 MCI, SINGLE
     Route: 042
     Dates: start: 20101207, end: 20101207
  3. HEPARIN [Suspect]

REACTIONS (1)
  - DRUG INEFFECTIVE [None]
